FAERS Safety Report 8830476 (Version 2)
Quarter: 2012Q4

REPORT INFORMATION
  Report Type: 
  Country: US (occurrence: US)
  Receive Date: 20121009
  Receipt Date: 20121210
  Transmission Date: 20130627
  Serious: Yes (Hospitalization)
  Sender: FDA-Public Use
  Company Number: US-GILEAD-2012-0062354

PATIENT
  Age: 66 Year
  Sex: Male

DRUGS (1)
  1. LETAIRIS [Suspect]
     Indication: PULMONARY ARTERIAL HYPERTENSION
     Dosage: 5 mg, QD
     Route: 048
     Dates: start: 20120912

REACTIONS (3)
  - Cardiac failure congestive [Recovered/Resolved]
  - Arrhythmia [Recovered/Resolved]
  - Fluid retention [Recovered/Resolved]
